FAERS Safety Report 23374663 (Version 3)
Quarter: 2024Q2

REPORT INFORMATION
  Report Type: Spontaneous
  Country: US (occurrence: US)
  Receive Date: 20240105
  Receipt Date: 20240514
  Transmission Date: 20240716
  Serious: No
  Sender: FDA-Public Use
  Company Number: US-SANDOZ-SDZ2024US000757

PATIENT
  Age: 62 Year
  Sex: Female

DRUGS (2)
  1. ESTRADIOL [Suspect]
     Active Substance: ESTRADIOL
     Indication: Product used for unknown indication
     Dosage: 0.05 MG, Q2W
     Route: 065
  2. ESTRADIOL [Suspect]
     Active Substance: ESTRADIOL
     Dosage: 0.05 MG
     Route: 062

REACTIONS (4)
  - Skin burning sensation [Unknown]
  - Pruritus [Unknown]
  - Application site irritation [Unknown]
  - Device adhesion issue [Unknown]

NARRATIVE: CASE EVENT DATE: 20231001
